FAERS Safety Report 16480515 (Version 1)
Quarter: 2019Q2

REPORT INFORMATION
  Report Type: Report from Study
  Country: DE (occurrence: DE)
  Receive Date: 20190626
  Receipt Date: 20190626
  Transmission Date: 20190711
  Serious: Yes (Death)
  Sender: FDA-Public Use
  Company Number: PHHY2015DE133231

PATIENT
  Sex: Male
  Weight: 93.6 kg

DRUGS (1)
  1. PAZOPANIB [Suspect]
     Active Substance: PAZOPANIB
     Indication: RENAL CELL CARCINOMA
     Dosage: 800 MG, QD
     Route: 048
     Dates: start: 20150420, end: 20150624

REACTIONS (5)
  - Gamma-glutamyltransferase increased [Recovered/Resolved]
  - Acute kidney injury [Fatal]
  - Alanine aminotransferase increased [Recovered/Resolved]
  - Pneumonia [Fatal]
  - Metastases to peritoneum [Fatal]

NARRATIVE: CASE EVENT DATE: 20150601
